FAERS Safety Report 9936365 (Version 1)
Quarter: 2014Q1

REPORT INFORMATION
  Report Type: Spontaneous
  Country: US (occurrence: US)
  Receive Date: 20140228
  Receipt Date: 20140228
  Transmission Date: 20141002
  Serious: No
  Sender: FDA-Public Use
  Company Number: US-AMGEN-USASP2014002851

PATIENT
  Age: 58 Year
  Sex: Female
  Weight: 117.91 kg

DRUGS (3)
  1. ENBREL [Suspect]
     Indication: RHEUMATOID ARTHRITIS
     Dosage: 50 MG/ML, Q2WK
     Route: 058
     Dates: start: 201307
  2. METHOTREXATE [Concomitant]
     Dosage: UNK, QWK
  3. HUMIRA [Concomitant]
     Dosage: UNK

REACTIONS (3)
  - Fatigue [Not Recovered/Not Resolved]
  - Drug ineffective [Unknown]
  - Breakthrough pain [Unknown]
